FAERS Safety Report 6184038-2 (Version None)
Quarter: 2009Q2

REPORT INFORMATION
  Report Type: 
  Country: None (occurrence: None)
  Receive Date: 20090508
  Receipt Date: 20090430
  Transmission Date: 20091009
  Serious: Yes (Hospitalization)
  Sender: FDA-Public Use
  Company Number: US-BAYER-200911375BCC

PATIENT
  Age: 64 Year
  Sex: Female

DRUGS (10)
  1. ASPIRIN [Suspect]
     Indication: PULMONARY EMBOLISM
  2. COUMADIN [Suspect]
     Indication: PULMONARY HYPERTENSION
  3. LETAIRIS [Suspect]
     Indication: PULMONARY ARTERIAL HYPERTENSION
     Route: 048
     Dates: start: 20070701
  4. REMODULIN [Concomitant]
     Indication: PULMONARY HYPERTENSION
     Dates: start: 20090201
  5. LANOXIN [Concomitant]
     Indication: CARDIAC FAILURE CONGESTIVE
  6. AVAPRO [Concomitant]
     Indication: HYPERTENSION
  7. TOPROL-XL [Concomitant]
     Indication: HYPERTENSION
  8. LASIX [Concomitant]
     Indication: CARDIAC FAILURE CONGESTIVE
  9. ALDACTONE [Concomitant]
     Indication: CARDIAC FAILURE CONGESTIVE
  10. REVATIO [Concomitant]
     Dates: start: 20050823

REACTIONS (1)
  - LOWER GASTROINTESTINAL HAEMORRHAGE [None]
